FAERS Safety Report 22165848 (Version 5)
Quarter: 2023Q2

REPORT INFORMATION
  Report Type: Spontaneous
  Country: DE (occurrence: DE)
  Receive Date: 20230403
  Receipt Date: 20230621
  Transmission Date: 20230722
  Serious: Yes (Other)
  Sender: FDA-Public Use
  Company Number: DE-NOVOPROD-1044630

PATIENT
  Age: 84 Year
  Sex: Male
  Weight: 100 kg

DRUGS (1)
  1. INSULIN DETEMIR [Suspect]
     Active Substance: INSULIN DETEMIR
     Indication: Type 2 diabetes mellitus
     Dosage: UNK

REACTIONS (3)
  - Renal failure [Unknown]
  - Sepsis [Unknown]
  - Dehydration [Unknown]
